FAERS Safety Report 6237031-5 (Version None)
Quarter: 2009Q2

REPORT INFORMATION
  Report Type: 
  Country: None (occurrence: None)
  Receive Date: 20090617
  Receipt Date: 20080124
  Transmission Date: 20091009
  Serious: No
  Sender: FDA-Public Use
  Company Number: 271517

PATIENT
  Age: 75 Year
  Sex: Female

DRUGS (5)
  1. LEVEMIR [Suspect]
     Indication: INSULIN-REQUIRING TYPE 2 DIABETES MELLITUS
     Dosage: 42 IU, QD, SUBCUTANEOUS ; 12 IU, SUBCUTANEOUS
     Route: 058
     Dates: start: 20071201
  2. LEVEMIR [Suspect]
     Indication: INSULIN-REQUIRING TYPE 2 DIABETES MELLITUS
     Dosage: 42 IU, QD, SUBCUTANEOUS ; 12 IU, SUBCUTANEOUS
     Route: 058
     Dates: start: 20071201
  3. METFORMIN HCL [Concomitant]
  4. AMARYL [Concomitant]
  5. BENAZEPRIL HYDROCHLORIDE [Concomitant]

REACTIONS (1)
  - INJECTION SITE NODULE [None]
